FAERS Safety Report 5826848-4 (Version None)
Quarter: 2008Q3

REPORT INFORMATION
  Report Type: 
  Country: None (occurrence: None)
  Receive Date: 20080730
  Receipt Date: 20080618
  Transmission Date: 20090109
  Serious: Yes (Hospitalization)
  Sender: FDA-Public Use
  Company Number: US-BAYER-200821525NA

PATIENT
  Age: 24 Year
  Sex: Female
  Weight: 126 kg

DRUGS (1)
  1. MIRENA [Suspect]
     Indication: CONTRACEPTION
     Route: 015
     Dates: start: 20080408, end: 20080429

REACTIONS (6)
  - CEREBRAL DISORDER [None]
  - CEREBROSPINAL FLUID RETENTION [None]
  - COAGULOPATHY [None]
  - FATIGUE [None]
  - HYPOAESTHESIA [None]
  - PARAESTHESIA [None]
